FAERS Safety Report 4312307-7 (Version None)
Quarter: 2004Q1

REPORT INFORMATION
  Report Type: 
  Country: None (occurrence: None)
  Receive Date: 20040305
  Receipt Date: 20040223
  Transmission Date: 20041129
  Serious: Yes (Hospitalization)
  Sender: FDA-Public Use
  Company Number: GB-GLAXOSMITHKLINE-B0324370A

PATIENT
  Sex: Female
  Weight: 60 kg

DRUGS (3)
  1. LAMICTAL [Suspect]
     Indication: CONVULSION
     Dosage: 50MG PER DAY
     Route: 048
     Dates: start: 20030501, end: 20030701
  2. CARBAMAZEPINE [Suspect]
     Indication: CONVULSION
     Dosage: 200MG PER DAY
     Route: 048
     Dates: start: 20030701
  3. PIZOTIFEN [Concomitant]
     Indication: HEADACHE
     Dosage: 1MG PER DAY
     Route: 048
     Dates: start: 20001101, end: 20030501

REACTIONS (1)
  - CHOLECYSTITIS CHRONIC [None]
